FAERS Safety Report 4677933-4 (Version None)
Quarter: 2005Q2

REPORT INFORMATION
  Report Type: 
  Country: None (occurrence: None)
  Receive Date: 20050527
  Receipt Date: 20050527
  Transmission Date: 20051028
  Serious: Yes (Life-Threatening, Hospitalization)
  Sender: FDA-Public Use
  Company Number: None

PATIENT
  Age: 25 Year
  Sex: Male
  Weight: 63.1 kg

DRUGS (3)
  1. VALPROIC ACID [Suspect]
     Indication: CONVULSION
     Dosage: 1250 MG AM, 1000 PM  PO
     Route: 048
     Dates: start: 20050214, end: 20050504
  2. OMEPRAZOLE [Concomitant]
  3. TRAZODONE HCL [Concomitant]

REACTIONS (2)
  - DELIRIUM [None]
  - HYPERAMMONAEMIA [None]
